FAERS Safety Report 9612489 (Version 2)
Quarter: 2013Q4

REPORT INFORMATION
  Report Type: Spontaneous
  Country: JP (occurrence: JP)
  Receive Date: 20131010
  Receipt Date: 20131014
  Transmission Date: 20140711
  Serious: Yes (Death)
  Sender: FDA-Public Use
  Company Number: JP-PFIZER INC-2013290559

PATIENT
  Age: 9 Decade
  Sex: Male

DRUGS (1)
  1. NOVASTAN [Suspect]
     Dosage: UNK
     Route: 051

REACTIONS (2)
  - Pleural effusion [Fatal]
  - Respiratory failure [Fatal]
